FAERS Safety Report 17690985 (Version 2)
Quarter: 2020Q2

REPORT INFORMATION
  Report Type: Report from Study
  Country: US (occurrence: US)
  Receive Date: 20200422
  Receipt Date: 20200610
  Transmission Date: 20200714
  Serious: No
  Sender: FDA-Public Use
  Company Number: NVSC2020US105638

PATIENT
  Sex: Female

DRUGS (2)
  1. COSENTYX [Suspect]
     Active Substance: SECUKINUMAB
     Dosage: 300 MG, QMO
     Route: 058
  2. COSENTYX [Suspect]
     Active Substance: SECUKINUMAB
     Indication: PSORIASIS
     Dosage: 150 MG, Q2W
     Route: 058

REACTIONS (4)
  - Drug ineffective [Unknown]
  - Arthralgia [Not Recovered/Not Resolved]
  - Inappropriate schedule of product administration [Unknown]
  - Feeling abnormal [Not Recovered/Not Resolved]
